FAERS Safety Report 23548320 (Version 1)
Quarter: 2024Q1

REPORT INFORMATION
  Report Type: Other
  Country: GB (occurrence: GB)
  Receive Date: 20240221
  Receipt Date: 20240221
  Transmission Date: 20240410
  Serious: No
  Sender: FDA-Public Use
  Company Number: None

PATIENT

DRUGS (6)
  1. TIMOLOL [Suspect]
     Active Substance: TIMOLOL
     Indication: Adverse drug reaction
     Dosage: 0.1 MG ONCE A DAY AT NIGHT; ;
     Dates: start: 20230905, end: 20240112
  2. GLUCOSAMINE WITH CHONDROITIN [Concomitant]
     Indication: Adverse drug reaction
     Dates: start: 2019
  3. LEVOTHYROXINE [Concomitant]
     Active Substance: LEVOTHYROXINE\LEVOTHYROXINE SODIUM
     Indication: Adverse drug reaction
     Dates: start: 1987
  4. LOSARTAN [Concomitant]
     Active Substance: LOSARTAN
     Indication: Adverse drug reaction
     Dates: start: 2022
  5. MIRTAZAPINE [Concomitant]
     Active Substance: MIRTAZAPINE
     Indication: Depression
     Dates: start: 2017
  6. VITAMIN D SUBSTANCES [Concomitant]
     Indication: Adverse drug reaction
     Dates: start: 2017

REACTIONS (1)
  - Joint swelling [Recovered/Resolved]

NARRATIVE: CASE EVENT DATE: 20240112
